FAERS Safety Report 15841738 (Version 1)
Quarter: 2019Q1

REPORT INFORMATION
  Report Type: Other
  Country: JP (occurrence: JP)
  Receive Date: 20190118
  Receipt Date: 20190118
  Transmission Date: 20190417
  Serious: Yes (Hospitalization, Other)
  Sender: FDA-Public Use
  Company Number: JP-ACTELION-A-CH2019-184902

PATIENT
  Age: 60 Year
  Sex: Female

DRUGS (3)
  1. SARPOGRELATE HYDROCHLORIDE [Suspect]
     Active Substance: SARPOGRELATE HYDROCHLORIDE
     Indication: PRODUCT USED FOR UNKNOWN INDICATION
     Route: 048
  2. BOSENTAN. [Suspect]
     Active Substance: BOSENTAN
     Indication: SCLERODERMA ASSOCIATED DIGITAL ULCER
     Route: 048
  3. PROSTAGLANDIN E1 [Suspect]
     Active Substance: ALPROSTADIL
     Indication: PRODUCT USED FOR UNKNOWN INDICATION
     Route: 048

REACTIONS (11)
  - Pulmonary artery dilatation [Unknown]
  - Amputation [Recovered/Resolved]
  - Pericardial effusion [Recovering/Resolving]
  - Cardiac tamponade [Recovering/Resolving]
  - Complement factor decreased [Recovering/Resolving]
  - Pericarditis [Unknown]
  - Pericardial drainage [Unknown]
  - Generalised oedema [Unknown]
  - Pleural effusion [Unknown]
  - Gangrene [Recovered/Resolved]
  - Concomitant disease progression [Recovered/Resolved]

NARRATIVE: CASE EVENT DATE: 201702
